FAERS Safety Report 9337056 (Version 1)
Quarter: 2013Q2

REPORT INFORMATION
  Report Type: Spontaneous
  Country: US (occurrence: US)
  Receive Date: 20130607
  Receipt Date: 20130607
  Transmission Date: 20140414
  Serious: No
  Sender: FDA-Public Use
  Company Number: US-TEVA-410370USA

PATIENT
  Age: 84 Year
  Sex: Male
  Weight: 86.26 kg

DRUGS (5)
  1. QNASL [Suspect]
     Indication: EAR DISORDER
     Dates: start: 20130529, end: 20130603
  2. PLAVIX [Concomitant]
     Indication: TRANSIENT ISCHAEMIC ATTACK
     Route: 048
  3. TIMOLOL [Concomitant]
     Indication: GLAUCOMA
     Dosage: .5 PERCENT DAILY; ONE DROP EACH EYE
  4. BRIMONIDINE [Concomitant]
     Indication: GLAUCOMA
     Dosage: ONE DROP EACH EYE
  5. LANTANOPROST [Concomitant]
     Dosage: ONE DROP EACH EYE QHS

REACTIONS (3)
  - Sneezing [Recovered/Resolved]
  - Dysphonia [Recovered/Resolved]
  - Insomnia [Recovered/Resolved]
